FAERS Safety Report 8960298 (Version 1)
Quarter: 2012Q4

REPORT INFORMATION
  Report Type: Report from Study
  Country: HU (occurrence: HU)
  Receive Date: 20121211
  Receipt Date: 20121211
  Transmission Date: 20130627
  Serious: Yes (Hospitalization)
  Sender: FDA-Public Use
  Company Number: HU-VERTEX PHARMACEUTICALS INC.-2012-025980

PATIENT
  Age: 54 Year
  Sex: Female
  Weight: 77 kg

DRUGS (3)
  1. VX-950 (TELAPREVIR) [Suspect]
     Indication: HEPATITIS C
     Dosage: 750 mg, tid
     Dates: start: 20120612, end: 20120816
  2. RIBAVIRIN [Suspect]
     Indication: HEPATITIS
     Dosage: Dosage Form: Unspecified
     Route: 065
     Dates: start: 20120612, end: 20120816
  3. PEG-INTERFERON [Suspect]
     Indication: HEPATITIS
     Dosage: Dosage Form: Unspecified
     Route: 065
     Dates: start: 20120612, end: 20120816

REACTIONS (3)
  - Encephalopathy [Recovered/Resolved]
  - Hepatic cirrhosis [Recovered/Resolved]
  - Hypothyroidism [Recovered/Resolved]
